FAERS Safety Report 5969402-6 (Version None)
Quarter: 2008Q4

REPORT INFORMATION
  Report Type: 
  Country: None (occurrence: None)
  Receive Date: 20081126
  Receipt Date: 20080829
  Transmission Date: 20090506
  Serious: No
  Sender: FDA-Public Use
  Company Number: US-ABBOTT-08P-163-0473158-00

PATIENT

DRUGS (5)
  1. SIMCOR [Suspect]
     Indication: BLOOD CHOLESTEROL INCREASED
     Dates: start: 20080801
  2. ACETYLSALICYLIC ACID SRT [Concomitant]
     Indication: DRUG USE FOR UNKNOWN INDICATION
     Route: 048
  3. UNKNOWN MEDICATIONS [Concomitant]
     Indication: DRUG USE FOR UNKNOWN INDICATION
  4. NEBULIZER [Concomitant]
     Indication: DRUG USE FOR UNKNOWN INDICATION
  5. OXYGEN [Concomitant]
     Indication: DRUG USE FOR UNKNOWN INDICATION

REACTIONS (1)
  - SLEEP DISORDER [None]
